FAERS Safety Report 17598949 (Version 1)
Quarter: 2020Q1

REPORT INFORMATION
  Report Type: Spontaneous
  Country: CN (occurrence: CN)
  Receive Date: 20200330
  Receipt Date: 20200330
  Transmission Date: 20200409
  Serious: Yes (Other)
  Sender: FDA-Public Use
  Company Number: CN-PFIZER INC-2020129840

PATIENT
  Age: 34 Year
  Sex: Female
  Weight: 69 kg

DRUGS (2)
  1. SODIUM CHLORIDE. [Concomitant]
     Active Substance: SODIUM CHLORIDE
     Indication: VEHICLE SOLUTION USE
     Dosage: 200.0000 ML, 1X/DAY
     Route: 041
     Dates: start: 20200325, end: 20200325
  2. SOLU-MEDROL [Suspect]
     Active Substance: METHYLPREDNISOLONE SODIUM SUCCINATE
     Indication: ASHERMAN^S SYNDROME
     Dosage: 80.000 MG, 1X/DAY
     Route: 041
     Dates: start: 20200325, end: 20200325

REACTIONS (7)
  - Body temperature increased [Recovering/Resolving]
  - Product use in unapproved indication [Unknown]
  - Delirium [Recovering/Resolving]
  - Disorganised speech [Recovering/Resolving]
  - Off label use [Unknown]
  - Mental disorder [Recovering/Resolving]
  - Euphoric mood [Recovering/Resolving]

NARRATIVE: CASE EVENT DATE: 20200325
